FAERS Safety Report 4682697-4 (Version None)
Quarter: 2005Q2

REPORT INFORMATION
  Report Type: 
  Country: None (occurrence: None)
  Receive Date: 20050606
  Receipt Date: 20050526
  Transmission Date: 20051028
  Serious: Yes (Hospitalization)
  Sender: FDA-Public Use
  Company Number: 200511545JP

PATIENT
  Age: 65 Year
  Sex: Male

DRUGS (3)
  1. LANTUS [Suspect]
     Indication: BLOOD GLUCOSE ABNORMAL
     Route: 058
     Dates: start: 20040930
  2. OPTIPEN (INSULIN PUMP) [Suspect]
     Dates: start: 20040930
  3. ACTOS [Concomitant]

REACTIONS (6)
  - BLOOD PRESSURE INCREASED [None]
  - GLYCOSYLATED HAEMOGLOBIN INCREASED [None]
  - HYPERGLYCAEMIA [None]
  - NASOPHARYNGITIS [None]
  - OEDEMA [None]
  - WEIGHT INCREASED [None]
